FAERS Safety Report 7879522-7 (Version None)
Quarter: 2011Q4

REPORT INFORMATION
  Report Type: 
  Country: None (occurrence: None)
  Receive Date: 20111101
  Receipt Date: 20111019
  Transmission Date: 20120403
  Serious: Yes (Hospitalization)
  Sender: FDA-Public Use
  Company Number: US-GLAXOSMITHKLINE-A0768708A

PATIENT
  Age: 53 Year
  Sex: Female
  Weight: 81.8 kg

DRUGS (8)
  1. AVANDAMET [Suspect]
     Indication: TYPE 2 DIABETES MELLITUS
     Route: 048
     Dates: start: 20040611, end: 20040701
  2. LOTREL [Concomitant]
  3. GLUCOPHAGE [Concomitant]
     Dates: start: 20040101, end: 20050101
  4. PREDNISONE [Concomitant]
  5. AVANDIA [Suspect]
     Indication: TYPE 2 DIABETES MELLITUS
     Dosage: 8MG PER DAY
     Route: 048
     Dates: start: 20040701, end: 20050101
  6. ADVAIR DISKUS 100/50 [Concomitant]
  7. HYDROCHLOROTHIAZIDE [Concomitant]
  8. METFORMIN HCL [Concomitant]
     Dates: start: 20050101

REACTIONS (3)
  - CEREBROVASCULAR ACCIDENT [None]
  - CEREBRAL INFARCTION [None]
  - CARDIAC MURMUR [None]
